FAERS Safety Report 11860534 (Version 1)
Quarter: 2015Q4

REPORT INFORMATION
  Report Type: Spontaneous
  Country: US (occurrence: US)
  Receive Date: 20151222
  Receipt Date: 20151222
  Transmission Date: 20160305
  Serious: Yes (Death)
  Sender: FDA-Public Use
  Company Number: US-INSYS THERAPEUTICS, INC-INS201506-000235

PATIENT
  Age: 58 Year
  Sex: Male
  Weight: 66.23 kg

DRUGS (9)
  1. NUVIGIL [Concomitant]
     Active Substance: ARMODAFINIL
     Indication: NARCOLEPSY
  2. BABY ASPIRIN [Concomitant]
     Active Substance: ASPIRIN
  3. DIAZEPAM. [Concomitant]
     Active Substance: DIAZEPAM
  4. SUBSYS [Suspect]
     Active Substance: FENTANYL
     Indication: PAIN
     Dates: start: 20151015, end: 20151124
  5. DRONABINOL. [Concomitant]
     Active Substance: DRONABINOL
  6. SUBSYS [Suspect]
     Active Substance: FENTANYL
     Indication: CANCER PAIN
     Dates: start: 201410
  7. OXYCODONE [Concomitant]
     Active Substance: OXYCODONE
  8. ATORVASTATIN CALCIUM. [Concomitant]
     Active Substance: ATORVASTATIN CALCIUM
  9. FENTANYL TRANSDERMAL SYSTEM [Concomitant]
     Active Substance: FENTANYL

REACTIONS (2)
  - Drug ineffective [Unknown]
  - Death [Fatal]

NARRATIVE: CASE EVENT DATE: 20150601
